FAERS Safety Report 7081421-8 (Version None)
Quarter: 2010Q4

REPORT INFORMATION
  Report Type: 
  Country: None (occurrence: None)
  Receive Date: 20101102
  Receipt Date: 20101102
  Transmission Date: 20110411
  Serious: Yes (Other)
  Sender: FDA-Public Use
  Company Number: None

PATIENT
  Age: 50 Year
  Sex: Female
  Weight: 74.3899 kg

DRUGS (1)
  1. LEVAQUIN [Suspect]
     Indication: SINUSITIS
     Dosage: 50 MG ONCE DAILY PO
     Route: 048
     Dates: start: 20101004, end: 20101008

REACTIONS (2)
  - ARTHRALGIA [None]
  - ARTHRITIS [None]
